FAERS Safety Report 4900029-0 (Version None)
Quarter: 2006Q1

REPORT INFORMATION
  Report Type: 
  Country: None (occurrence: None)
  Receive Date: 20060203
  Receipt Date: 20051114
  Transmission Date: 20060701
  Serious: Yes (Other)
  Sender: FDA-Public Use
  Company Number: US-AVENTIS-200519998GDDC

PATIENT
  Age: 15 Month
  Sex: Female
  Weight: 11.7 kg

DRUGS (7)
  1. KETEK [Suspect]
     Indication: OTITIS MEDIA
     Dates: start: 20051019, end: 20051022
  2. IBUPROFEN [Concomitant]
     Indication: PAIN
     Route: 048
     Dates: start: 20051017, end: 20051018
  3. IBUPROFEN [Concomitant]
     Indication: PYREXIA
     Route: 048
     Dates: start: 20051017, end: 20051018
  4. INFLUENZA VACCINE [Concomitant]
     Indication: PROPHYLAXIS
     Route: 030
     Dates: start: 20051012, end: 20051012
  5. TYLENOL W/ CODEINE [Concomitant]
     Route: 048
     Dates: start: 20051019, end: 20051019
  6. TYLENOL INFANTS DROPS [Concomitant]
     Route: 048
     Dates: start: 20051019, end: 20051019
  7. AMOXICILLIN AND CLAVULANATE POTASSIUM [Concomitant]
     Route: 048
     Dates: start: 20051025

REACTIONS (1)
  - STARING [None]
